FAERS Safety Report 5334764-X (Version None)
Quarter: 2007Q2

REPORT INFORMATION
  Report Type: 
  Country: None (occurrence: None)
  Receive Date: 20070525
  Receipt Date: 20070517
  Transmission Date: 20071010
  Serious: Yes (Hospitalization, Other)
  Sender: FDA-Public Use
  Company Number: IT-AMGEN-UK225497

PATIENT
  Sex: Female

DRUGS (7)
  1. NESPO [Suspect]
     Indication: RENAL FAILURE CHRONIC
     Route: 058
     Dates: start: 20070116, end: 20070424
  2. ALLOPURINOL [Concomitant]
  3. FUROSEMIDE [Concomitant]
  4. CALCITRIOL [Concomitant]
  5. TRIATEC [Concomitant]
  6. LORSARTAN POTASSIUM HYDROCHLORIDE [Concomitant]
  7. MANIDIPINE [Concomitant]

REACTIONS (3)
  - APLASIA PURE RED CELL [None]
  - ERYTHROPOIESIS ABNORMAL [None]
  - PLEURAL EFFUSION [None]
